FAERS Safety Report 5169903-7 (Version None)
Quarter: 2006Q4

REPORT INFORMATION
  Report Type: 
  Country: None (occurrence: None)
  Receive Date: 20061212
  Receipt Date: 20060825
  Transmission Date: 20070319
  Serious: Yes (Hospitalization, Other)
  Sender: FDA-Public Use
  Company Number: US-ELI_LILLY_AND_COMPANY-US200609006072

PATIENT
  Age: 59 Year
  Sex: Female
  Weight: 111.79 kg

DRUGS (4)
  1. ATENOLOL [Concomitant]
     Dates: start: 20051001
  2. DEPAKOTE [Concomitant]
     Dates: start: 20050101
  3. ARIPIPRAZOLE [Concomitant]
     Dates: start: 20060101
  4. ZYPREXA [Suspect]
     Indication: DEPRESSION
     Dosage: 10 MG, UNKNOWN
     Route: 065
     Dates: start: 20020101, end: 20060101

REACTIONS (6)
  - BLOOD CHOLESTEROL ABNORMAL [None]
  - BLOOD TRIGLYCERIDES INCREASED [None]
  - CONDITION AGGRAVATED [None]
  - DIABETES MELLITUS [None]
  - GASTROINTESTINAL HAEMORRHAGE [None]
  - PANCREATITIS [None]
